FAERS Safety Report 5846598-8 (Version None)
Quarter: 2008Q3

REPORT INFORMATION
  Report Type: 
  Country: None (occurrence: None)
  Receive Date: 20080815
  Receipt Date: 20080806
  Transmission Date: 20090109
  Serious: Yes (Life-Threatening, Hospitalization, Disabling)
  Sender: FDA-Public Use
  Company Number: NSADSS2001025121

PATIENT
  Age: 28 Year
  Sex: Female

DRUGS (2)
  1. REMICADE [Suspect]
     Route: 041
     Dates: start: 20010802
  2. REMICADE [Suspect]
     Indication: RHEUMATOID ARTHRITIS
     Route: 041
     Dates: start: 20010802

REACTIONS (7)
  - ANAPHYLACTIC REACTION [None]
  - BLINDNESS [None]
  - CEREBROVASCULAR ACCIDENT [None]
  - DYSPHAGIA [None]
  - RHEUMATOID ARTHRITIS [None]
  - URINARY INCONTINENCE [None]
  - VOMITING [None]
